FAERS Safety Report 23172782 (Version 3)
Quarter: 2023Q4

REPORT INFORMATION
  Report Type: Report from Study
  Country: GB (occurrence: GB)
  Receive Date: 20231110
  Receipt Date: 20231211
  Transmission Date: 20240109
  Serious: Yes (Other)
  Sender: FDA-Public Use
  Company Number: GB-ALXN-A202302444

PATIENT
  Age: 22 Year
  Sex: Female

DRUGS (6)
  1. SOLIRIS [Suspect]
     Active Substance: ECULIZUMAB
     Indication: Paroxysmal nocturnal haemoglobinuria
     Dosage: 600 MG, QW
     Route: 065
     Dates: start: 20150910, end: 20151001
  2. SOLIRIS [Suspect]
     Active Substance: ECULIZUMAB
     Dosage: 900 MG, Q2W
     Route: 042
     Dates: start: 20151008, end: 20161006
  3. SOLIRIS [Suspect]
     Active Substance: ECULIZUMAB
     Dosage: 1200 MG, Q2W
     Route: 065
     Dates: start: 20161020, end: 20170406
  4. SOLIRIS [Suspect]
     Active Substance: ECULIZUMAB
     Dosage: 900 MG, Q2W
     Route: 042
     Dates: start: 20170427
  5. PENICILLIN G [Concomitant]
     Active Substance: PENICILLIN G
     Indication: Antibiotic prophylaxis
     Dosage: 500 MG, BID
     Route: 065
  6. PENICILLIN V                       /00001801/ [Concomitant]
     Indication: Product used for unknown indication
     Dosage: UNK UNK, QD
     Route: 065

REACTIONS (19)
  - Deep vein thrombosis [Not Recovered/Not Resolved]
  - Haemolysis [Not Recovered/Not Resolved]
  - Off label use [Unknown]
  - Medial tibial stress syndrome [Not Recovered/Not Resolved]
  - Contusion [Not Recovered/Not Resolved]
  - COVID-19 [Recovered/Resolved]
  - Gastroenteritis [Recovered/Resolved]
  - Renal pain [Not Recovered/Not Resolved]
  - Poor venous access [Not Recovered/Not Resolved]
  - Liver function test abnormal [Not Recovered/Not Resolved]
  - Infusion site swelling [Unknown]
  - Infusion site bruising [Unknown]
  - Swelling [Not Recovered/Not Resolved]
  - Sleep deficit [Not Recovered/Not Resolved]
  - Abdominal pain upper [Not Recovered/Not Resolved]
  - Pain [Recovering/Resolving]
  - Fatigue [Not Recovered/Not Resolved]
  - Arthralgia [Not Recovered/Not Resolved]
  - Allergy to vaccine [Not Recovered/Not Resolved]

NARRATIVE: CASE EVENT DATE: 20170803
